FAERS Safety Report 18517646 (Version 1)
Quarter: 2020Q4

REPORT INFORMATION
  Report Type: Report from Study
  Country: BR (occurrence: BR)
  Receive Date: 20201118
  Receipt Date: 20201118
  Transmission Date: 20210114
  Serious: Yes (Other)
  Sender: FDA-Public Use
  Company Number: BR-TAKEDA-BR202002911

PATIENT
  Age: 27 Year
  Sex: Male
  Weight: 86 kg

DRUGS (4)
  1. HEMO-8R [Suspect]
     Active Substance: ANTIHEMOPHILIC FACTOR, HUMAN RECOMBINANT
     Dosage: 2000 INTERNATIONAL UNIT, 2X A WEEK
     Route: 042
     Dates: start: 20161214
  2. HEMO-8R [Suspect]
     Active Substance: ANTIHEMOPHILIC FACTOR, HUMAN RECOMBINANT
     Indication: FACTOR VIII DEFICIENCY
     Dosage: 2000 INTERNATIONAL UNIT, 1X/WEEK
     Route: 042
  3. HEMO-8R [Suspect]
     Active Substance: ANTIHEMOPHILIC FACTOR, HUMAN RECOMBINANT
     Dosage: 2000 UNK
     Route: 042
     Dates: start: 20161214
  4. HEMO-8R [Suspect]
     Active Substance: ANTIHEMOPHILIC FACTOR, HUMAN RECOMBINANT
     Dosage: 2000 INTERNATIONAL UNIT, 2X A WEEK
     Route: 042
     Dates: start: 20200122

REACTIONS (6)
  - Haemarthrosis [Recovering/Resolving]
  - Haemophilic arthropathy [Unknown]
  - Joint injury [Recovering/Resolving]
  - Blood urine present [Recovering/Resolving]
  - Nephrolithiasis [Recovering/Resolving]
  - Ligament sprain [Recovering/Resolving]

NARRATIVE: CASE EVENT DATE: 202001
